FAERS Safety Report 23132849 (Version 4)
Quarter: 2023Q4

REPORT INFORMATION
  Report Type: Report from Study
  Country: US (occurrence: US)
  Receive Date: 20231101
  Receipt Date: 20231128
  Transmission Date: 20240109
  Serious: No
  Sender: FDA-Public Use
  Company Number: US-002147023-NVSC2023US231554

PATIENT
  Sex: Female
  Weight: 61.23 kg

DRUGS (2)
  1. COSENTYX [Suspect]
     Active Substance: SECUKINUMAB
     Indication: Psoriasis
     Dosage: UNK
     Route: 065
  2. COSENTYX [Suspect]
     Active Substance: SECUKINUMAB
     Dosage: UNK
     Route: 065
     Dates: start: 20230204

REACTIONS (7)
  - Flatulence [Unknown]
  - Respiratory disorder [Recovered/Resolved]
  - Androgenetic alopecia [Unknown]
  - Vulvovaginal candidiasis [Unknown]
  - Psoriasis [Unknown]
  - Skin exfoliation [Unknown]
  - Therapeutic product effect incomplete [Unknown]
